FAERS Safety Report 6155124-8 (Version None)
Quarter: 2009Q2

REPORT INFORMATION
  Report Type: 
  Country: None (occurrence: None)
  Receive Date: 20090415
  Receipt Date: 20070719
  Transmission Date: 20091009
  Serious: Yes (Hospitalization, Other)
  Sender: FDA-Public Use
  Company Number: US-ASTRAZENECA-2007UW02132

PATIENT
  Age: 18123 Day
  Sex: Female
  Weight: 74.8 kg

DRUGS (15)
  1. SEROQUEL [Suspect]
     Route: 048
     Dates: start: 20011201
  2. SEROQUEL [Suspect]
     Dosage: 25-225 MG
     Route: 048
     Dates: start: 20011129
  3. ACTOS [Concomitant]
  4. PREMPRO [Concomitant]
  5. NEXIUM [Concomitant]
  6. NEURONTIN [Concomitant]
  7. XANAX [Concomitant]
  8. ALBUTEROL [Concomitant]
  9. TYLENOL [Concomitant]
  10. CELEXA [Concomitant]
  11. TENORMIN [Concomitant]
  12. TRILEPTAL [Concomitant]
  13. WELCHOL [Concomitant]
  14. SINGULAIR [Concomitant]
  15. GLYSET [Concomitant]

REACTIONS (28)
  - ABDOMINAL DISTENSION [None]
  - ABDOMINAL PAIN LOWER [None]
  - ACROCHORDON [None]
  - ADENOVIRUS INFECTION [None]
  - ADNEXA UTERI MASS [None]
  - ALOPECIA [None]
  - ASTHMA [None]
  - BRONCHITIS [None]
  - CHANGE OF BOWEL HABIT [None]
  - CHEST PAIN [None]
  - CHILLS [None]
  - CONSTIPATION [None]
  - CONVULSION [None]
  - DYSFUNCTIONAL UTERINE BLEEDING [None]
  - DYSPNOEA [None]
  - FIBROMYALGIA [None]
  - HAEMORRHOIDS [None]
  - HYPOAESTHESIA [None]
  - MUSCLE SPASMS [None]
  - NAUSEA [None]
  - NIGHT SWEATS [None]
  - OEDEMA PERIPHERAL [None]
  - OROPHARYNGEAL PAIN [None]
  - PELVIC MASS [None]
  - PELVIC PAIN [None]
  - POSTMENOPAUSAL HAEMORRHAGE [None]
  - TYPE 2 DIABETES MELLITUS [None]
  - URINARY TRACT INFECTION [None]
